FAERS Safety Report 5031966-7 (Version None)
Quarter: 2006Q2

REPORT INFORMATION
  Report Type: 
  Country: None (occurrence: None)
  Receive Date: 20060609
  Receipt Date: 20060530
  Transmission Date: 20061013
  Serious: No
  Sender: FDA-Public Use
  Company Number: 2006BH010487

PATIENT
  Age: 53 Year
  Sex: Female
  Weight: 78 kg

DRUGS (1)
  1. TISSEEL VH KIT [Suspect]
     Indication: SURGERY
     Dates: start: 20060523

REACTIONS (2)
  - PNEUMOPERITONEUM [None]
  - POST PROCEDURAL COMPLICATION [None]
